FAERS Safety Report 12522933 (Version 1)
Quarter: 2016Q3

REPORT INFORMATION
  Report Type: Spontaneous
  Country: US (occurrence: US)
  Receive Date: 20160701
  Receipt Date: 20160701
  Transmission Date: 20161109
  Serious: No
  Sender: FDA-Public Use
  Company Number: US-PRINSTON PHARMACEUTICAL INC.-2016PRN00053

PATIENT
  Age: 79 Year
  Sex: Male
  Weight: 83.9 kg

DRUGS (4)
  1. ALLOPURINOL. [Concomitant]
     Active Substance: ALLOPURINOL
     Dosage: 100 MG, 1X/DAY
  2. PRAVASTATIN SODIUM. [Concomitant]
     Active Substance: PRAVASTATIN SODIUM
     Dosage: 10 MG, 1X/DAY
  3. ZETIA [Concomitant]
     Active Substance: EZETIMIBE
     Dosage: 10 MG, 1X/DAY
  4. VALSARTAN. [Suspect]
     Active Substance: VALSARTAN
     Indication: HYPERTENSION
     Dosage: 40 MG, 1X/DAY
     Route: 048
     Dates: start: 20160307, end: 20160323

REACTIONS (12)
  - Urine output decreased [Recovered/Resolved]
  - Weight increased [Not Recovered/Not Resolved]
  - Product substitution issue [Unknown]
  - Dizziness [Recovered/Resolved]
  - Dry mouth [Recovering/Resolving]
  - Orthostatic hypertension [Recovered/Resolved]
  - Micturition frequency decreased [Recovered/Resolved]
  - Fatigue [Recovering/Resolving]
  - Dry throat [Recovering/Resolving]
  - Nausea [Recovered/Resolved]
  - Dry eye [Recovering/Resolving]
  - Blood pressure decreased [Recovered/Resolved]

NARRATIVE: CASE EVENT DATE: 201603
